FAERS Safety Report 6316703-8 (Version None)
Quarter: 2009Q3

REPORT INFORMATION
  Report Type: 
  Country: None (occurrence: None)
  Receive Date: 20090820
  Receipt Date: 20090811
  Transmission Date: 20100115
  Serious: Yes (Hospitalization, Other)
  Sender: FDA-Public Use
  Company Number: ES-ABBOTT-09P-144-0588573-00

PATIENT
  Sex: Male

DRUGS (4)
  1. HUMIRA [Suspect]
     Indication: PSORIATIC ARTHROPATHY
     Dates: start: 20070101
  2. HUMIRA [Suspect]
  3. PREDNISONA [Concomitant]
     Indication: PSORIATIC ARTHROPATHY
     Dates: start: 20060101
  4. ARAVA [Concomitant]
     Indication: PSORIATIC ARTHROPATHY

REACTIONS (1)
  - TENDON RUPTURE [None]
